FAERS Safety Report 20368332 (Version 1)
Quarter: 2022Q1

REPORT INFORMATION
  Report Type: Spontaneous
  Country: US (occurrence: US)
  Receive Date: 20220124
  Receipt Date: 20220124
  Transmission Date: 20220423
  Serious: No
  Sender: FDA-Public Use
  Company Number: ALC2021US004198

PATIENT
  Sex: Female

DRUGS (5)
  1. BETADINE [Suspect]
     Active Substance: POVIDONE-IODINE
     Indication: Product used for unknown indication
     Dosage: UNK
     Route: 065
  2. REMODULIN [Suspect]
     Active Substance: TREPROSTINIL
     Indication: Pulmonary arterial hypertension
     Dosage: 0.108 ?G/KG, CONTINUING
     Route: 041
     Dates: start: 20180625
  3. REMODULIN [Suspect]
     Active Substance: TREPROSTINIL
     Dosage: 0.108 ?G/KG, CONTINUING
     Route: 041
  4. ACTIVATED CHARCOAL\SILVER SULFATE [Suspect]
     Active Substance: ACTIVATED CHARCOAL\SILVER SULFATE
     Indication: Product used for unknown indication
     Dosage: UNK
     Route: 065
  5. ALCOHOL WIPE [Suspect]
     Active Substance: ISOPROPYL ALCOHOL
     Indication: Product used for unknown indication
     Dosage: UNK
     Route: 065

REACTIONS (3)
  - Pruritus [Unknown]
  - Rash [Unknown]
  - Dermatitis contact [Not Recovered/Not Resolved]
